FAERS Safety Report 12885661 (Version 1)
Quarter: 2016Q4

REPORT INFORMATION
  Report Type: Spontaneous
  Country: US (occurrence: US)
  Receive Date: 20161026
  Receipt Date: 20161026
  Transmission Date: 20170207
  Serious: No
  Sender: FDA-Public Use
  Company Number: US-BAYER-2016-206305

PATIENT
  Age: 88 Year
  Sex: Female
  Weight: 72.56 kg

DRUGS (5)
  1. ASMANEX [Concomitant]
     Active Substance: MOMETASONE FUROATE
     Indication: ASTHMA
     Dosage: UNK
  2. MIRALAX [Suspect]
     Active Substance: POLYETHYLENE GLYCOL 3350
     Indication: GASTROINTESTINAL DISORDER
     Dosage: 1 TEASPOON, UNK
     Route: 048
  3. BREO ELLIPTA [Concomitant]
     Active Substance: FLUTICASONE FUROATE\VILANTEROL TRIFENATATE
     Indication: ASTHMA
     Dosage: UNK
  4. PRESERVISION EYE VITAMIN AND MINERAL SUPPL. [Concomitant]
     Indication: EYE DISORDER
  5. MOBIC [Concomitant]
     Active Substance: MELOXICAM
     Indication: BONE DISORDER
     Dosage: UNK

REACTIONS (2)
  - Underdose [Unknown]
  - Product use issue [Unknown]
